FAERS Safety Report 15061049 (Version 11)
Quarter: 2019Q4

REPORT INFORMATION
  Report Type: Spontaneous
  Country: US (occurrence: US)
  Receive Date: 20180625
  Receipt Date: 20191021
  Transmission Date: 20200122
  Serious: Yes (Hospitalization, Other)
  Sender: FDA-Public Use
  Company Number: US-PFIZER INC-2018254550

PATIENT
  Age: 46 Year
  Sex: Female

DRUGS (51)
  1. DILANTIN-125 [Suspect]
     Active Substance: PHENYTOIN
     Indication: GENERALISED TONIC-CLONIC SEIZURE
  2. PANTOPRAZOLE [Concomitant]
     Active Substance: PANTOPRAZOLE
     Indication: GASTROOESOPHAGEAL REFLUX DISEASE
     Dosage: UNK
     Dates: start: 20160910
  3. PROVENTIL [Concomitant]
     Active Substance: ALBUTEROL
     Indication: ASTHMA
     Dosage: UNK
     Dates: start: 20081029, end: 20090929
  4. AMBIEN [Concomitant]
     Active Substance: ZOLPIDEM TARTRATE
     Indication: SLEEP DISORDER
     Dosage: UNK
     Dates: start: 20090401, end: 20090831
  5. LODINE [Concomitant]
     Active Substance: ETODOLAC
     Indication: PAIN
     Dosage: UNK
     Dates: start: 20090929, end: 20100908
  6. FIORICET [Concomitant]
     Active Substance: ACETAMINOPHEN\BUTALBITAL\CAFFEINE
     Indication: HEADACHE
     Dosage: UNK
     Dates: start: 20100625, end: 20100908
  7. DILANTIN-125 [Suspect]
     Active Substance: PHENYTOIN
     Indication: SEIZURE
     Dosage: UNK, 2X/DAY
     Dates: start: 1964, end: 1976
  8. FLONASE [Concomitant]
     Active Substance: FLUTICASONE PROPIONATE
     Dosage: UNK
     Dates: start: 2016, end: 2018
  9. PROTONIX [Concomitant]
     Active Substance: PANTOPRAZOLE SODIUM
     Dosage: 1 DF, DAILY
     Route: 048
     Dates: start: 20180910, end: 20190220
  10. TEMAZEPAM. [Concomitant]
     Active Substance: TEMAZEPAM
     Indication: INSOMNIA
     Dosage: UNK
     Dates: start: 20090527, end: 20090831
  11. EFFEXOR [Concomitant]
     Active Substance: VENLAFAXINE HYDROCHLORIDE
     Indication: ANXIETY
     Dosage: UNK
     Dates: start: 20090831, end: 20090929
  12. TORADOL [Concomitant]
     Active Substance: KETOROLAC TROMETHAMINE
     Indication: PAIN
     Dosage: 30 MG, AS NEEDED (EVERY 6 HOURS)
     Route: 042
     Dates: start: 20151008, end: 20151013
  13. TORADOL [Concomitant]
     Active Substance: KETOROLAC TROMETHAMINE
     Indication: INFLAMMATION
  14. ZOFRAN [Concomitant]
     Active Substance: ONDANSETRON HYDROCHLORIDE
     Indication: NAUSEA
     Dosage: 4 MG, AS NEEDED (EVERY 6 HOURS)
     Route: 042
     Dates: start: 20151008, end: 20151107
  15. DILANTIN [Suspect]
     Active Substance: PHENYTOIN
     Indication: SEIZURE
     Dosage: UNK
     Route: 048
     Dates: start: 1964, end: 1977
  16. FLONASE [Concomitant]
     Active Substance: FLUTICASONE PROPIONATE
     Indication: NASAL DISORDER
     Dosage: AS DIRECTED, 2 SPRAYS DAILY
     Dates: start: 20180910, end: 20190220
  17. PROAIR INHALER [Concomitant]
     Active Substance: ALBUTEROL SULFATE
     Indication: ASTHMA
     Dosage: UNK
     Dates: start: 20020512
  18. PROZAC [Concomitant]
     Active Substance: FLUOXETINE HYDROCHLORIDE
     Dosage: 20 MG, DAILY
  19. BENTYL [Concomitant]
     Active Substance: DICYCLOMINE HYDROCHLORIDE
     Indication: IRRITABLE BOWEL SYNDROME
     Dosage: UNK
     Dates: start: 20130111, end: 20140429
  20. ALBUTEROL. [Concomitant]
     Active Substance: ALBUTEROL
     Dosage: UNK
  21. DILANTIN [Suspect]
     Active Substance: PHENYTOIN
     Indication: GENERALISED TONIC-CLONIC SEIZURE
  22. QVAR [Concomitant]
     Active Substance: BECLOMETHASONE DIPROPIONATE
     Indication: DYSPNOEA
     Dosage: INHALE 2 PUFFS BY INHALATION ROUTE, 2X/DAY
     Dates: start: 20180126
  23. PAXIL [Concomitant]
     Active Substance: PAROXETINE HYDROCHLORIDE
     Indication: DEPRESSION
     Dosage: UNK
     Dates: start: 2008, end: 200907
  24. NAPROXEN. [Concomitant]
     Active Substance: NAPROXEN
     Indication: PAIN
     Dosage: UNK
     Dates: start: 20110217, end: 20110830
  25. MORPHINE [Concomitant]
     Active Substance: MORPHINE
     Indication: PAIN
     Dosage: 30 ML, AS NEEDED
     Dates: start: 20151008, end: 20151018
  26. FLEXERIL [Concomitant]
     Active Substance: CYCLOBENZAPRINE HYDROCHLORIDE
     Indication: MUSCLE RELAXANT THERAPY
     Dosage: UNK
     Dates: start: 20070322, end: 20080322
  27. SOMA [Concomitant]
     Active Substance: CARISOPRODOL
     Indication: MUSCLE RELAXANT THERAPY
     Dosage: UNK
     Dates: start: 20090401, end: 20110519
  28. ADDERALL [Concomitant]
     Active Substance: AMPHETAMINE ASPARTATE\AMPHETAMINE SULFATE\DEXTROAMPHETAMINE SACCHARATE\DEXTROAMPHETAMINE SULFATE
     Indication: ATTENTION DEFICIT/HYPERACTIVITY DISORDER
     Dosage: UNK
     Dates: start: 20120308, end: 20120601
  29. DARVOCET [Concomitant]
     Active Substance: ACETAMINOPHEN\PROPOXYPHENE HYDROCHLORIDE
     Dosage: UNK
  30. OXYCODONE [Concomitant]
     Active Substance: OXYCODONE
     Indication: PAIN
     Dosage: 30 MG, 1X/DAY
     Route: 048
     Dates: start: 20151008, end: 20151018
  31. ONDANSETRON [Concomitant]
     Active Substance: ONDANSETRON
     Indication: NAUSEA
     Dosage: 4 MG, AS NEEDED (EVERY 6 HOURS)
     Route: 042
     Dates: start: 20151008, end: 20151107
  32. PROTONIX [Concomitant]
     Active Substance: PANTOPRAZOLE SODIUM
     Indication: GASTROOESOPHAGEAL REFLUX DISEASE
     Dosage: UNK
     Dates: start: 2017, end: 2018
  33. DICYCLOMINE [Concomitant]
     Active Substance: DICYCLOMINE HYDROCHLORIDE
     Indication: IRRITABLE BOWEL SYNDROME
     Dosage: UNK
     Dates: start: 20120228, end: 20141215
  34. VINPOCETINE [Concomitant]
     Active Substance: VINPOCETINE
     Dosage: UNK
     Dates: start: 20190503
  35. MIDRIN [Concomitant]
     Active Substance: ACETAMINOPHEN\DICHLORALPHENAZONE\ISOMETHEPTENE
     Dosage: UNK
  36. TYLENOL [Concomitant]
     Active Substance: ACETAMINOPHEN
     Indication: PYREXIA
     Dosage: 650 MG, EVERY 4 HRS (AS NEEDED)
     Route: 048
     Dates: start: 20151008, end: 20151107
  37. ZOLPIDEM TARTRATE. [Concomitant]
     Active Substance: ZOLPIDEM TARTRATE
     Indication: INSOMNIA
     Dosage: 5 MG, AS NEEDED (EVERY BEDTIME)
     Dates: start: 20151008, end: 20151018
  38. FENTANYL. [Concomitant]
     Active Substance: FENTANYL
     Indication: PAIN
     Dosage: 25 UG, AS NEEDED
     Route: 042
     Dates: start: 20151008, end: 20151008
  39. PROTONIX [Concomitant]
     Active Substance: PANTOPRAZOLE SODIUM
     Dosage: 1 DF, ONCE TO TWICE DAILY IF NEEDED
     Route: 048
     Dates: start: 20190220
  40. QVAR [Concomitant]
     Active Substance: BECLOMETHASONE DIPROPIONATE
     Dosage: UNK
     Dates: start: 2013, end: 2016
  41. LORATADINE. [Concomitant]
     Active Substance: LORATADINE
     Indication: MULTIPLE ALLERGIES
     Dosage: UNK
     Dates: start: 20180404
  42. WELLBUTRIN [Concomitant]
     Active Substance: BUPROPION HYDROCHLORIDE
     Indication: DEPRESSION
     Dosage: UNK
     Dates: start: 2009, end: 2011
  43. TYLENOL [Concomitant]
     Active Substance: ACETAMINOPHEN
     Indication: PAIN
  44. BENADRYL [Concomitant]
     Active Substance: DIPHENHYDRAMINE HYDROCHLORIDE
     Indication: PRURITUS
     Dosage: 25 MG, AS NEEDED EVERY 12 HOURS
     Route: 048
     Dates: start: 20151008, end: 20151107
  45. CEFAZOLIN [Concomitant]
     Active Substance: CEFAZOLIN
     Indication: BACTERIAL INFECTION
     Dosage: 20 ML/HR, EVERY 8 HOURS
     Dates: start: 20151008, end: 20151009
  46. DULCOLAX NOS [Concomitant]
     Active Substance: BISACODYL OR DOCUSATE SODIUM
     Indication: CONSTIPATION
     Dosage: 1 DF, 2X/DAY
     Route: 054
     Dates: start: 20151008, end: 20151107
  47. CLARITIN [Concomitant]
     Active Substance: LORATADINE
     Indication: MULTIPLE ALLERGIES
     Dosage: 1 DF, DAILY
     Route: 048
     Dates: start: 20180404, end: 20190220
  48. CLARITIN [Concomitant]
     Active Substance: LORATADINE
     Dosage: UNK
     Dates: start: 2017, end: 2018
  49. PROZAC [Concomitant]
     Active Substance: FLUOXETINE HYDROCHLORIDE
     Indication: DEPRESSION
     Dosage: UNK
     Dates: start: 20080313, end: 20081029
  50. VOLTAREN [Concomitant]
     Active Substance: DICLOFENAC SODIUM
     Indication: HEADACHE
     Dosage: UNK
     Dates: start: 20081201, end: 20090527
  51. PHENOBARBITAL. [Concomitant]
     Active Substance: PHENOBARBITAL
     Indication: SEIZURE
     Dosage: UNK
     Dates: start: 1964, end: 1977

REACTIONS (15)
  - Neuropathy peripheral [Unknown]
  - Fibromyalgia [Unknown]
  - Vertebral foraminal stenosis [Unknown]
  - Neck pain [Unknown]
  - Contusion [Unknown]
  - Cognitive disorder [Not Recovered/Not Resolved]
  - Migraine [Unknown]
  - Ataxia [Not Recovered/Not Resolved]
  - Loss of consciousness [Unknown]
  - Fall [Unknown]
  - Cerebellar atrophy [Not Recovered/Not Resolved]
  - Ligament sprain [Unknown]
  - Poor quality sleep [Unknown]
  - Spinal osteoarthritis [Unknown]
  - Dizziness [Unknown]

NARRATIVE: CASE EVENT DATE: 2008
